FAERS Safety Report 13817475 (Version 4)
Quarter: 2017Q4

REPORT INFORMATION
  Report Type: Spontaneous
  Country: IT (occurrence: IT)
  Receive Date: 20170731
  Receipt Date: 20171221
  Transmission Date: 20180320
  Serious: Yes (Hospitalization, Other)
  Sender: FDA-Public Use
  Company Number: IT-SA-2017SA133592

PATIENT
  Age: 73 Year
  Sex: Male

DRUGS (1)
  1. AUBAGIO [Suspect]
     Active Substance: TERIFLUNOMIDE
     Indication: RELAPSING-REMITTING MULTIPLE SCLEROSIS
     Route: 048
     Dates: start: 201503, end: 20171205

REACTIONS (20)
  - White blood cell count increased [Not Recovered/Not Resolved]
  - Inflammatory marker increased [Unknown]
  - Left ventricular hypertrophy [Unknown]
  - Adrenal adenoma [Unknown]
  - Product use issue [Unknown]
  - Spinal compression fracture [Unknown]
  - Scan bone marrow abnormal [Unknown]
  - Anaemia [Unknown]
  - Pleural effusion [Unknown]
  - Mycobacterium tuberculosis complex test positive [Unknown]
  - B-cell lymphoma [Not Recovered/Not Resolved]
  - Hepatic enzyme abnormal [Unknown]
  - Osteoporosis [Unknown]
  - Abdominal pain upper [Unknown]
  - Rectal haemorrhage [Unknown]
  - Tricuspid valve incompetence [Unknown]
  - Hilar lymphadenopathy [Unknown]
  - Decreased appetite [Unknown]
  - Weight decreased [Unknown]
  - Lymphocyte count increased [Not Recovered/Not Resolved]

NARRATIVE: CASE EVENT DATE: 2017
